FAERS Safety Report 9260929 (Version 1)
Quarter: 2013Q2

REPORT INFORMATION
  Report Type: Spontaneous
  Country: US (occurrence: US)
  Receive Date: 20130429
  Receipt Date: 20130429
  Transmission Date: 20140414
  Serious: No
  Sender: FDA-Public Use
  Company Number: US-AMGEN-USASP2012029255

PATIENT
  Age: 43 Year
  Sex: Female

DRUGS (2)
  1. SENSIPAR [Suspect]
     Indication: RENAL FAILURE
     Dosage: 30 MG, 3 TIMES/WK
     Route: 048
     Dates: start: 2011
  2. SENSIPAR [Suspect]
     Indication: RENAL FAILURE

REACTIONS (2)
  - Heart rate increased [Not Recovered/Not Resolved]
  - Palpitations [Not Recovered/Not Resolved]
